FAERS Safety Report 4487227-8 (Version None)
Quarter: 2004Q4

REPORT INFORMATION
  Report Type: 
  Country: None (occurrence: None)
  Receive Date: 20041027
  Receipt Date: 20041018
  Transmission Date: 20050328
  Serious: Yes (Hospitalization)
  Sender: FDA-Public Use
  Company Number: PHRM2004FR03131

PATIENT
  Age: 78 Year
  Sex: Female
  Weight: 78 kg

DRUGS (7)
  1. NISISCO [Suspect]
     Indication: HYPERTENSION
     Dosage: 1 TABLET/DAY
     Route: 048
     Dates: start: 20040401, end: 20040810
  2. DAFLON [Concomitant]
     Indication: VENOUS INSUFFICIENCY
     Route: 048
  3. MOTILIUM [Concomitant]
     Dosage: 6 DF/DAY
     Route: 048
  4. ANTIBIO-SYNALAR [Concomitant]
     Dosage: 3 DF/DAY
     Route: 001
  5. ACETAMINOPHEN [Concomitant]
     Dosage: 3 DF/DAY
     Route: 048
  6. CEFUROXIME AXETIL [Concomitant]
     Indication: BRONCHITIS
     Route: 048
     Dates: start: 20040701, end: 20040801
  7. ALDACTAZINE [Suspect]
     Indication: HYPERTENSION
     Dosage: 1 DF/DAY
     Route: 048
     Dates: start: 20040401, end: 20040810

REACTIONS (13)
  - ASTHENIA [None]
  - ATRIOVENTRICULAR BLOCK FIRST DEGREE [None]
  - BRADYPHRENIA [None]
  - BRONCHITIS [None]
  - CREATININE RENAL CLEARANCE DECREASED [None]
  - HAEMATOMA [None]
  - HYPOKALAEMIA [None]
  - HYPONATRAEMIA [None]
  - NAUSEA [None]
  - NEUTROPHIL COUNT INCREASED [None]
  - RENAL IMPAIRMENT [None]
  - VOMITING [None]
  - WHITE BLOOD CELL COUNT INCREASED [None]
